FAERS Safety Report 20653453 (Version 1)
Quarter: 2022Q1

REPORT INFORMATION
  Report Type: Other
  Country: GB (occurrence: GB)
  Receive Date: 20220330
  Receipt Date: 20220330
  Transmission Date: 20220423
  Serious: Yes (Other)
  Sender: FDA-Public Use
  Company Number: GB-MACLEODS PHARMA UK LTD-MAC2022035024

PATIENT

DRUGS (2)
  1. TAMSULOSIN [Suspect]
     Active Substance: TAMSULOSIN
     Indication: Product used for unknown indication
     Dosage: UNK
     Route: 065
  2. TAMSULOSIN [Suspect]
     Active Substance: TAMSULOSIN
     Dosage: 400 MILLIGRAM
     Route: 065
     Dates: start: 20220307, end: 20220312

REACTIONS (9)
  - Confusional state [Recovering/Resolving]
  - Dysarthria [Recovering/Resolving]
  - Hyperhidrosis [Recovering/Resolving]
  - Transient ischaemic attack [Unknown]
  - Dysstasia [Unknown]
  - Fall [Unknown]
  - Drug hypersensitivity [Unknown]
  - Adverse drug reaction [Recovering/Resolving]
  - Medication error [Unknown]

NARRATIVE: CASE EVENT DATE: 20220312
